FAERS Safety Report 8138124-8 (Version None)
Quarter: 2012Q1

REPORT INFORMATION
  Report Type: 
  Country: None (occurrence: None)
  Receive Date: 20120215
  Receipt Date: 20120215
  Transmission Date: 20120608
  Serious: Yes (Other)
  Sender: FDA-Public Use
  Company Number: None

PATIENT
  Age: 64 Year
  Sex: Female
  Weight: 71.214 kg

DRUGS (5)
  1. VACCINES [Concomitant]
     Route: 051
  2. DIPROLENE OINTMENT 0.05% [Concomitant]
     Route: 061
  3. TRIAMCINOLONE CREAM 0,1% [Concomitant]
     Route: 061
  4. CLEOCIN GEL 1% [Concomitant]
     Route: 061
  5. LEVAQUIN [Suspect]
     Indication: DIARRHOEA
     Dosage: 750 MG
     Route: 048

REACTIONS (1)
  - ROTATOR CUFF SYNDROME [None]
